FAERS Safety Report 5907735-X (Version None)
Quarter: 2008Q3

REPORT INFORMATION
  Report Type: 
  Country: None (occurrence: None)
  Receive Date: 20080929
  Receipt Date: 20080915
  Transmission Date: 20090109
  Serious: Yes (Hospitalization)
  Sender: FDA-Public Use
  Company Number: 2008AL010524

PATIENT
  Age: 57 Year
  Sex: Female

DRUGS (4)
  1. GABAPENTIN [Suspect]
     Indication: DYSAESTHESIA
     Dosage: 300 MG;X1;PO
     Route: 048
  2. ACARBOSE [Concomitant]
  3. GLIMEPIRIDE [Concomitant]
  4. ROSIGLITAZONE [Concomitant]

REACTIONS (9)
  - ALTERED STATE OF CONSCIOUSNESS [None]
  - BLOOD CREATININE INCREASED [None]
  - BLOOD GLUCOSE INCREASED [None]
  - BLOOD PRESSURE SYSTOLIC INCREASED [None]
  - BLOOD SODIUM DECREASED [None]
  - DIZZINESS [None]
  - HAEMATOCRIT DECREASED [None]
  - LETHARGY [None]
  - VOMITING [None]
